FAERS Safety Report 6141090-8 (Version None)
Quarter: 2009Q2

REPORT INFORMATION
  Report Type: 
  Country: None (occurrence: None)
  Receive Date: 20090401
  Receipt Date: 20090401
  Transmission Date: 20091009
  Serious: No
  Sender: FDA-Public Use
  Company Number: None

PATIENT
  Age: 77 Year
  Sex: Male
  Weight: 92.08 kg

DRUGS (2)
  1. WARFARIN SODIUM [Suspect]
     Dosage: 19 MG QWEEK PO
     Route: 048
     Dates: start: 20061005
  2. PREDNISONE [Suspect]
     Dosage: 40 MG EVERY DAY PO
     Route: 048
     Dates: start: 20080708, end: 20081104

REACTIONS (3)
  - HAEMOPTYSIS [None]
  - HAEMORRHAGE [None]
  - INTERNATIONAL NORMALISED RATIO ABNORMAL [None]
